FAERS Safety Report 22078096 (Version 1)
Quarter: 2023Q1

REPORT INFORMATION
  Report Type: Spontaneous
  Country: FR (occurrence: FR)
  Receive Date: 20230309
  Receipt Date: 20230309
  Transmission Date: 20230418
  Serious: Yes (Other)
  Sender: FDA-Public Use
  Company Number: FR-PFIZER INC-202201340046

PATIENT
  Age: 56 Year
  Sex: Female

DRUGS (8)
  1. IBRANCE [Suspect]
     Active Substance: PALBOCICLIB
     Indication: Breast cancer
     Dosage: 125 MG, CYCLIC 125 MG, CYCLIC (ONCE DAILY FOR 21 DAYS, 7 DAYS OFF)
     Dates: start: 20210630, end: 202206
  2. IBRANCE [Suspect]
     Active Substance: PALBOCICLIB
     Dosage: 125 MG, CYCLIC (ONCE DAILY FOR 21 DAYS, 7 DAYS OFF)
     Dates: start: 202209, end: 20221231
  3. FASLODEX [Concomitant]
     Active Substance: FULVESTRANT
     Indication: Breast cancer
     Dosage: 2 DF, CYCLIC (EVERY 28 DAYS)
     Route: 030
     Dates: start: 20210630
  4. DAFALGAN [Concomitant]
     Active Substance: ACETAMINOPHEN
     Indication: Pain
     Dosage: 1000 MG, 3X/DAY
     Route: 048
  5. LAMICTAL [Concomitant]
     Active Substance: LAMOTRIGINE
     Indication: Epilepsy
     Dosage: 100 MG, 2X/DAY (MORNING AND EVENING)
     Route: 048
  6. OXAZEPAM [Concomitant]
     Active Substance: OXAZEPAM
     Indication: Insomnia
     Dosage: 10 MG, 1X/DAY (EVENING)
     Route: 048
  7. LEVOTHYROXINE [Concomitant]
     Active Substance: LEVOTHYROXINE
     Indication: Hypothyroidism
     Dosage: 112 UG, 1X/DAY (MORNING)
     Route: 048
  8. CHOLECALCIFEROL [Concomitant]
     Active Substance: CHOLECALCIFEROL
     Indication: Vitamin supplementation
     Dosage: 10 DROP, DAILY
     Route: 048

REACTIONS (4)
  - Breast operation [Unknown]
  - Hirsutism [Not Recovered/Not Resolved]
  - Disease recurrence [Not Recovered/Not Resolved]
  - Constipation [Unknown]

NARRATIVE: CASE EVENT DATE: 20220601
